FAERS Safety Report 10072759 (Version 2)
Quarter: 2014Q2

REPORT INFORMATION
  Report Type: Spontaneous
  Country: US (occurrence: US)
  Receive Date: 20140411
  Receipt Date: 20140502
  Transmission Date: 20141212
  Serious: No
  Sender: FDA-Public Use
  Company Number: US-PFIZER INC-2014101756

PATIENT
  Age: 58 Year
  Sex: Male
  Weight: 129.25 kg

DRUGS (11)
  1. SUTENT [Suspect]
     Indication: NEOPLASM MALIGNANT
     Dosage: 50 MG, 1X/DAY
     Route: 048
  2. OXYCODONE [Concomitant]
     Dosage: UNK
  3. PERCOCET [Concomitant]
     Dosage: UNK
  4. QUININE [Concomitant]
     Dosage: UNK
  5. DILAUDID [Concomitant]
     Dosage: UNK
  6. DIAZEPAM [Concomitant]
     Dosage: UNK
  7. MECLIZINE [Concomitant]
     Dosage: UNK
  8. METHYLPHENIDATE [Concomitant]
     Dosage: UNK
  9. FLUOXETINE [Concomitant]
     Dosage: UNK
  10. LEVOTHYROXINE [Concomitant]
     Dosage: UNK
  11. AMLODIPINE [Concomitant]
     Dosage: UNK

REACTIONS (3)
  - Disease progression [Unknown]
  - Neoplasm malignant [Unknown]
  - Skin toxicity [Unknown]
